FAERS Safety Report 5841930-3 (Version None)
Quarter: 2008Q3

REPORT INFORMATION
  Report Type: 
  Country: None (occurrence: None)
  Receive Date: 20080812
  Receipt Date: 20050802
  Transmission Date: 20090109
  Serious: Yes (Other)
  Sender: FDA-Public Use
  Company Number: US-MERCK-0403USA01374

PATIENT
  Age: 0 Day

DRUGS (4)
  1. SINGULAIR [Suspect]
     Indication: ASTHMA
     Route: 064
     Dates: start: 20040301
  2. PROVENTIL [Concomitant]
     Route: 064
  3. FLOVENT [Concomitant]
     Route: 064
  4. SEREVENT [Concomitant]
     Route: 064

REACTIONS (1)
  - FOETAL HEART RATE DECREASED [None]
